FAERS Safety Report 13123480 (Version 2)
Quarter: 2017Q1

REPORT INFORMATION
  Report Type: Spontaneous
  Country: None (occurrence: US)
  Receive Date: 20170117
  Receipt Date: 20170216
  Transmission Date: 20170428
  Serious: No
  Sender: FDA-Public Use
  Company Number: US-MATRIXX INITIATIVES, INC.-1062091

PATIENT
  Age: 57 Year
  Sex: Male
  Weight: 93.18 kg

DRUGS (1)
  1. ZICAM COLD REMEDY NASAL GEL [Suspect]
     Active Substance: HOMEOPATHICS\ZINC ACETATE\ZINC GLUCONATE
     Indication: NASAL CONGESTION
     Route: 045

REACTIONS (2)
  - Ageusia [Recovering/Resolving]
  - Anosmia [Recovering/Resolving]
